FAERS Safety Report 9082217 (Version 1)
Quarter: 2013Q1

REPORT INFORMATION
  Report Type: Report from Study
  Country: US (occurrence: US)
  Receive Date: 20130131
  Receipt Date: 20130131
  Transmission Date: 20140127
  Serious: No
  Sender: FDA-Public Use
  Company Number: US-ABBOTT-12P-163-0992550-00

PATIENT
  Sex: Female

DRUGS (5)
  1. HUMIRA [Suspect]
     Indication: PSORIASIS
     Route: 058
     Dates: start: 201208
  2. NUPAGEN [Concomitant]
  3. BABY ASPIRIN [Concomitant]
  4. LISINOPRIL [Concomitant]
  5. MULTIVITAMIN [Concomitant]

REACTIONS (2)
  - Nail discolouration [Not Recovered/Not Resolved]
  - Nail discolouration [Not Recovered/Not Resolved]
